FAERS Safety Report 16802940 (Version 5)
Quarter: 2020Q4

REPORT INFORMATION
  Report Type: Report from Study
  Country: UA (occurrence: UA)
  Receive Date: 20190913
  Receipt Date: 20201104
  Transmission Date: 20210113
  Serious: Yes (Hospitalization)
  Sender: FDA-Public Use
  Company Number: UA-ROCHE-2399507

PATIENT
  Age: 33 Year
  Sex: Male
  Weight: 75 kg

DRUGS (17)
  1. PLACEBO [Suspect]
     Active Substance: UNSPECIFIED INGREDIENT
     Indication: PRIMARY PROGRESSIVE MULTIPLE SCLEROSIS
     Dosage: TWO INTRAVENOUS (IV) INFUSIONS SEPARATED BY 14 DAYS IN EACH TREATMENT CYCLE OF 24 WEEKS.?SUBSEQUENT
     Route: 042
     Dates: start: 20110802, end: 20151111
  2. ANALGIN (UKRAINE) [Concomitant]
     Indication: PYREXIA
     Dates: start: 20200820, end: 20200825
  3. CEFOPERAZONE [Concomitant]
     Active Substance: CEFOPERAZONE
     Indication: COVID-19
     Dates: start: 20200825, end: 20200829
  4. OFLOXACIN. [Concomitant]
     Active Substance: OFLOXACIN
     Indication: COVID-19
     Dates: start: 20200820, end: 20200825
  5. DIMEDROL [Concomitant]
     Active Substance: DIPHENHYDRAMINE
     Indication: PYREXIA
     Dates: start: 20200820, end: 20200825
  6. FRAXIPARINE [Concomitant]
     Active Substance: NADROPARIN CALCIUM
     Indication: COVID-19
     Dates: start: 20200820, end: 20200825
  7. OCRELIZUMAB. [Suspect]
     Active Substance: OCRELIZUMAB
     Dosage: TWO IV INFUSIONS OF OCRELIZUMAB 300 MG SEPARATED BY 14 DAYS FOR CYCLE 1 AND SINGLE IV INFUSION OF OC
     Route: 042
     Dates: start: 20170330
  8. METHYLPREDNISOLONE. [Concomitant]
     Active Substance: METHYLPREDNISOLONE
     Indication: PREMEDICATION
     Dosage: SUBSEQUENT DOSES: 02/AUG/2011, 16/AUG/2011, 17/JAN/2012, 03/FEB/2012, 18/MAY/2012, 03/JUL/2012, 17/J
  9. SULBACTAM [Concomitant]
     Active Substance: SULBACTAM
     Indication: COVID-19
     Dosage: 1 GRAIN(S)
     Dates: start: 20200825, end: 20200829
  10. OCRELIZUMAB. [Suspect]
     Active Substance: OCRELIZUMAB
     Indication: PRIMARY PROGRESSIVE MULTIPLE SCLEROSIS
     Dosage: TWO IV INFUSIONS OF OCRELIZUMAB 300 MG SEPARATED BY 14 DAYS FOR CYCLE 1 AND SINGLE IV INFUSION OF OC
     Route: 042
     Dates: start: 20151112
  11. RHEOSORBILACT [Concomitant]
     Indication: COVID-19
     Dates: start: 20200820, end: 20200825
  12. LEVOFLOXACIN. [Concomitant]
     Active Substance: LEVOFLOXACIN
     Dates: start: 20190828, end: 20190910
  13. CEFOTAXIME [Concomitant]
     Active Substance: CEFOTAXIME SODIUM
     Indication: COVID-19
     Dates: start: 20200820, end: 20200825
  14. DEXAMETAZON [Concomitant]
     Active Substance: DEXAMETHASONE
     Indication: COVID-19
     Dates: start: 20200820, end: 20200825
  15. LAVOMAX [Concomitant]
     Indication: COVID-19
     Dates: start: 20200825, end: 20200909
  16. PARACETAMOL [Concomitant]
     Active Substance: ACETAMINOPHEN
     Indication: PYREXIA
     Dates: start: 20200810, end: 20200907
  17. PULMOBREATHE [Concomitant]
     Indication: COVID-19
     Dates: start: 20200825, end: 20200909

REACTIONS (1)
  - Gangrene [Recovered/Resolved]

NARRATIVE: CASE EVENT DATE: 20190825
